FAERS Safety Report 10441358 (Version 1)
Quarter: 2014Q3

REPORT INFORMATION
  Report Type: Spontaneous
  Country: NL (occurrence: NL)
  Receive Date: 20140909
  Receipt Date: 20140909
  Transmission Date: 20150326
  Serious: Yes (Hospitalization)
  Sender: FDA-Public Use
  Company Number: NL-ASTRAZENECA-2014SE65516

PATIENT
  Age: 22703 Day
  Sex: Female

DRUGS (4)
  1. AZARGA OOGDRUPPELS FLACON 5ML [Concomitant]
     Route: 047
     Dates: start: 20091202
  2. OMEPRAZOL [Suspect]
     Active Substance: OMEPRAZOLE
     Indication: DIAPHRAGMATIC HERNIA
     Route: 048
     Dates: start: 20110318
  3. OMEPRAZOL [Interacting]
     Active Substance: OMEPRAZOLE
     Indication: OESOPHAGITIS
     Route: 048
     Dates: start: 20110318
  4. CITALOPRAM [Interacting]
     Active Substance: CITALOPRAM HYDROBROMIDE
     Indication: DEPRESSION
     Route: 048
     Dates: start: 20140610, end: 20140814

REACTIONS (2)
  - Drug interaction [Recovering/Resolving]
  - Serotonin syndrome [Recovering/Resolving]

NARRATIVE: CASE EVENT DATE: 20140809
